FAERS Safety Report 20911117 (Version 1)
Quarter: 2022Q2

REPORT INFORMATION
  Report Type: Spontaneous
  Country: PH (occurrence: None)
  Receive Date: 20220602
  Receipt Date: 20220602
  Transmission Date: 20220721
  Serious: Yes (Other)
  Sender: FDA-Public Use
  Company Number: None

PATIENT
  Age: 67 Year
  Sex: Male
  Weight: 75 kg

DRUGS (9)
  1. CIPROFLOXACIN [Suspect]
     Active Substance: CIPROFLOXACIN
     Indication: Diarrhoea
     Route: 042
  2. COLCICHINE MAINTENANCE [Concomitant]
  3. OMACOR [Concomitant]
     Active Substance: OMEGA-3-ACID ETHYL ESTERS
  4. FISH OIL [Concomitant]
     Active Substance: FISH OIL
  5. MAGNESIUM [Concomitant]
     Active Substance: MAGNESIUM
  6. VITAMIN E [Concomitant]
     Active Substance: .ALPHA.-TOCOPHEROL
  7. NAC [Concomitant]
  8. VIT B SUPPLEMENTATION [Concomitant]
  9. VIT C SUPPLEMENTATION [Concomitant]

REACTIONS (8)
  - Diarrhoea [None]
  - Tendonitis [None]
  - Tendonitis [None]
  - Muscle rupture [None]
  - Nephrotic syndrome [None]
  - Joint swelling [None]
  - Joint stiffness [None]
  - Pain [None]

NARRATIVE: CASE EVENT DATE: 20220509
